FAERS Safety Report 21668719 (Version 1)
Quarter: 2022Q4

REPORT INFORMATION
  Report Type: Spontaneous
  Country: US (occurrence: US)
  Receive Date: 20221201
  Receipt Date: 20221201
  Transmission Date: 20230113
  Serious: No
  Sender: FDA-Public Use
  Company Number: US-SA-SAC20221129001043

PATIENT
  Sex: Male

DRUGS (1)
  1. DUPIXENT [Suspect]
     Active Substance: DUPILUMAB
     Dosage: 200MG OTHER
     Route: 058
     Dates: start: 202203

REACTIONS (5)
  - Injection site rash [Unknown]
  - Injection site discolouration [Unknown]
  - Rhinorrhoea [Unknown]
  - Condition aggravated [Unknown]
  - Injection site pruritus [Unknown]

NARRATIVE: CASE EVENT DATE: 20220301
